FAERS Safety Report 9934918 (Version 1)
Quarter: 2014Q1

REPORT INFORMATION
  Report Type: Report from Study
  Country: KR (occurrence: KR)
  Receive Date: 20140228
  Receipt Date: 20140228
  Transmission Date: 20141002
  Serious: Yes (Hospitalization)
  Sender: FDA-Public Use
  Company Number: KR-SA-2014SA020228

PATIENT
  Age: 35 Year
  Sex: Male
  Weight: 55 kg

DRUGS (2)
  1. LANTUS [Suspect]
     Indication: DIABETES MELLITUS
     Dosage: DOSE:15 UNIT(S)
     Route: 058
     Dates: start: 20131120
  2. HUMALOG [Suspect]
     Indication: DIABETES MELLITUS
     Dosage: DOSE:4 UNIT(S)
     Route: 058
     Dates: start: 20131120, end: 20140128

REACTIONS (5)
  - Hyperthermia [Recovered/Resolved]
  - Cardiac disorder [Recovered/Resolved]
  - Inflammation [Recovered/Resolved]
  - Renal disorder [Recovered/Resolved]
  - Inflammation [Recovered/Resolved]
